FAERS Safety Report 24035640 (Version 1)
Quarter: 2024Q2

REPORT INFORMATION
  Report Type: Spontaneous
  Country: US (occurrence: None)
  Receive Date: 20240629
  Receipt Date: 20240629
  Transmission Date: 20240716
  Serious: No
  Sender: FDA-Public Use
  Company Number: None

PATIENT
  Age: 78 Year
  Sex: Male

DRUGS (8)
  1. XDEMVY [Suspect]
     Active Substance: LOTILANER
     Dosage: FREQUENCY : TWICE A DAY?
     Route: 047
  2. DORZOLAMIDE\TIMOLOL [Concomitant]
     Active Substance: DORZOLAMIDE\TIMOLOL
  3. Travoprost 0.004 [Concomitant]
  4. BUPROPION [Concomitant]
     Active Substance: BUPROPION\BUPROPION HYDROCHLORIDE
  5. Dovato 50-300 mg [Concomitant]
  6. HYDROXYZINE HYDROCHLORIDE [Concomitant]
     Active Substance: HYDROXYZINE HYDROCHLORIDE
  7. TAMSULOSIN [Concomitant]
     Active Substance: TAMSULOSIN
  8. Olmesartan/HCTZ 40-25 mg [Concomitant]

REACTIONS (2)
  - Ocular hyperaemia [None]
  - Skin weeping [None]

NARRATIVE: CASE EVENT DATE: 20240628
